FAERS Safety Report 13735758 (Version 1)
Quarter: 2017Q3

REPORT INFORMATION
  Report Type: Spontaneous
  Country: US (occurrence: US)
  Receive Date: 20170708
  Receipt Date: 20170708
  Transmission Date: 20171127
  Serious: Yes (Other)
  Sender: FDA-Public Use
  Company Number: None

PATIENT
  Age: 38 Year
  Sex: Female
  Weight: 87.75 kg

DRUGS (10)
  1. BIOTIN [Concomitant]
     Active Substance: BIOTIN
  2. NIACINAMIDE [Concomitant]
     Active Substance: NIACINAMIDE
  3. TOPIRAMATE. [Concomitant]
     Active Substance: TOPIRAMATE
  4. HYOSCYAMINE. [Concomitant]
     Active Substance: HYOSCYAMINE
  5. NEFAZODONE [Concomitant]
     Active Substance: NEFAZODONE
  6. DULOXETINE. [Suspect]
     Active Substance: DULOXETINE
     Indication: FIBROMYALGIA
     Dosage: ?          OTHER STRENGTH:MG;QUANTITY:1 CAPSULE(S);?
     Route: 048
     Dates: start: 20140930, end: 20160808
  7. DOXEPIN [Concomitant]
     Active Substance: DOXEPIN
  8. MELATONIN [Concomitant]
     Active Substance: MELATONIN
  9. VITAMIN B12 [Concomitant]
     Active Substance: CYANOCOBALAMIN
  10. EVENING PROMISE OIL [Concomitant]

REACTIONS (5)
  - Insomnia [None]
  - Anxiety [None]
  - Withdrawal syndrome [None]
  - Paraesthesia [None]
  - Tension [None]

NARRATIVE: CASE EVENT DATE: 20160808
